FAERS Safety Report 18168921 (Version 2)
Quarter: 2020Q3

REPORT INFORMATION
  Report Type: Spontaneous
  Country: US (occurrence: US)
  Receive Date: 20200819
  Receipt Date: 20200820
  Transmission Date: 20201103
  Serious: No
  Sender: FDA-Public Use
  Company Number: US-PFIZER INC-2020317967

PATIENT
  Age: 50 Year
  Sex: Female
  Weight: 74.84 kg

DRUGS (2)
  1. CELEBREX [Suspect]
     Active Substance: CELECOXIB
     Indication: PAIN
  2. CELEBREX [Suspect]
     Active Substance: CELECOXIB
     Indication: PERIPHERAL SWELLING
     Dosage: UNK
     Dates: start: 20010325

REACTIONS (1)
  - Weight increased [Unknown]
